FAERS Safety Report 9294199 (Version 1)
Quarter: 2013Q2

REPORT INFORMATION
  Report Type: Spontaneous
  Country: FR (occurrence: FR)
  Receive Date: 20130517
  Receipt Date: 20130517
  Transmission Date: 20140414
  Serious: Yes (Hospitalization)
  Sender: FDA-Public Use
  Company Number: FR-ROCHE-1224377

PATIENT
  Age: 58 Year
  Sex: Female

DRUGS (6)
  1. CELLCEPT [Suspect]
     Indication: PRODUCT USED FOR UNKNOWN INDICATION
     Route: 065
     Dates: start: 20130421
  2. BACTRIM [Suspect]
     Indication: PRODUCT USED FOR UNKNOWN INDICATION
     Route: 065
     Dates: start: 20130417
  3. TRIFLUCAN [Suspect]
     Indication: PRODUCT USED FOR UNKNOWN INDICATION
     Route: 065
     Dates: start: 20130417
  4. ZELITREX [Concomitant]
     Route: 065
     Dates: start: 20130417
  5. TRANXENE [Concomitant]
     Route: 065
     Dates: start: 20130417
  6. CYCLOSPORIN [Concomitant]
     Route: 065
     Dates: start: 20130421

REACTIONS (1)
  - Hepatocellular injury [Unknown]
